FAERS Safety Report 4716488-2 (Version None)
Quarter: 2005Q3

REPORT INFORMATION
  Report Type: 
  Country: None (occurrence: None)
  Receive Date: 20050714
  Receipt Date: 20050228
  Transmission Date: 20060218
  Serious: Yes (Disabling)
  Sender: FDA-Public Use
  Company Number: 2005039647

PATIENT
  Age: 20 Year
  Sex: Female

DRUGS (3)
  1. NEURONTIN [Suspect]
     Indication: NEUROPATHIC PAIN
     Dosage: 1200 MG (600 MG, 2 IN 1 D), ORAL
     Route: 048
     Dates: start: 20040519, end: 20041201
  2. ALL OTHER THERAPEUTIC PRODUCUTS (ALL OTHER THERAPEUTIC PRODUCTS) [Concomitant]
  3. CORTISONE ACETATE [Concomitant]

REACTIONS (5)
  - ABASIA [None]
  - CARDIOVASCULAR DISORDER [None]
  - CONDITION AGGRAVATED [None]
  - PAIN IN EXTREMITY [None]
  - PERIPHERAL COLDNESS [None]
